FAERS Safety Report 15998145 (Version 10)
Quarter: 2021Q3

REPORT INFORMATION
  Report Type: Report from Study
  Country: DE (occurrence: DE)
  Receive Date: 20190223
  Receipt Date: 20210728
  Transmission Date: 20211014
  Serious: Yes (Hospitalization)
  Sender: FDA-Public Use
  Company Number: DE-ROCHE-2264318

PATIENT
  Age: 57 Year
  Sex: Female
  Weight: 98 kg

DRUGS (24)
  1. VEMURAFENIB. [Suspect]
     Active Substance: VEMURAFENIB
     Dosage: DATE OF LAST DOSE PRIOR TO SAE: 21/FEB/2021
     Route: 048
     Dates: start: 20210125, end: 20210222
  2. GLIBENCLAMID [Concomitant]
     Active Substance: GLYBURIDE
  3. TORASEMID [Concomitant]
     Active Substance: TORSEMIDE
     Dates: start: 20190415
  4. COBIMETINIB. [Suspect]
     Active Substance: COBIMETINIB
     Route: 048
     Dates: start: 20190411
  5. BISOPROLOL [Concomitant]
     Active Substance: BISOPROLOL
  6. LANTUS [Concomitant]
     Active Substance: INSULIN GLARGINE
     Dates: start: 20190915
  7. VALSACOR [Concomitant]
     Active Substance: VALSARTAN
     Dates: start: 20190415
  8. FOLIC ACID. [Concomitant]
     Active Substance: FOLIC ACID
     Dates: start: 20190415
  9. ATEZOLIZUMAB. [Suspect]
     Active Substance: ATEZOLIZUMAB
     Indication: MALIGNANT MELANOMA
     Dosage: DATE OF LAST DOSE (1200 MG) PRIOR TO SAE: 04/JAN/2021
     Route: 042
     Dates: start: 20190430, end: 20210225
  10. INSUMAN [Concomitant]
     Active Substance: INSULIN HUMAN
     Dates: start: 20190415
  11. COBIMETINIB. [Suspect]
     Active Substance: COBIMETINIB
     Indication: MALIGNANT MELANOMA
     Dosage: DATE OF LAST DOSE PRIOR TO EVENT WAS 09/FEB/2019
     Route: 048
     Dates: start: 20190201, end: 20190212
  12. LOSARTAN. [Concomitant]
     Active Substance: LOSARTAN
  13. VEMURAFENIB. [Suspect]
     Active Substance: VEMURAFENIB
     Dosage: DATE OF LAST DOSE (480 MG) PRIOR TO SAE: 21/FEB/2021
     Route: 048
     Dates: start: 20190208
  14. FORXIGA [Concomitant]
     Active Substance: DAPAGLIFLOZIN
  15. VEMURAFENIB. [Suspect]
     Active Substance: VEMURAFENIB
     Indication: MALIGNANT MELANOMA
     Dosage: DATE OF LAST DOSE PRIOR TO EVENT WAS 09/FEB/2019
     Route: 048
     Dates: start: 20190201, end: 20190212
  16. COBIMETINIB. [Suspect]
     Active Substance: COBIMETINIB
     Dosage: DATE OF LAST DOSE PRIOR TO SAE: 07/FEB/2021
     Route: 048
     Dates: start: 20210125, end: 20210208
  17. COBIMETINIB. [Suspect]
     Active Substance: COBIMETINIB
     Route: 048
     Dates: start: 20190301
  18. ATORVASTATIN [Concomitant]
     Active Substance: ATORVASTATIN
     Dates: start: 20190415
  19. TILIDINE [Concomitant]
     Active Substance: TILIDINE
     Dates: start: 20200608
  20. HUMALOG [Concomitant]
     Active Substance: INSULIN LISPRO
     Dates: start: 20210222
  21. VEMURAFENIB. [Suspect]
     Active Substance: VEMURAFENIB
     Dosage: DATE OF LAST DOSE (480 MG) PRIOR TO SAE: 21/FEB/2021
     Route: 048
     Dates: start: 20190410
  22. VEMURAFENIB. [Suspect]
     Active Substance: VEMURAFENIB
     Route: 048
     Dates: start: 20190301
  23. JANUMET [Concomitant]
     Active Substance: METFORMIN HYDROCHLORIDE\SITAGLIPTIN PHOSPHATE
  24. EZETIMIBE. [Concomitant]
     Active Substance: EZETIMIBE
     Dates: start: 20210222

REACTIONS (5)
  - Nasopharyngitis [Not Recovered/Not Resolved]
  - Drug-induced liver injury [Recovered/Resolved]
  - Liver function test increased [Recovered/Resolved]
  - Acute kidney injury [Recovered/Resolved]
  - Immune-mediated hepatitis [Recovered/Resolved]

NARRATIVE: CASE EVENT DATE: 20190210
